FAERS Safety Report 12738640 (Version 1)
Quarter: 2016Q3

REPORT INFORMATION
  Report Type: Spontaneous
  Country: US (occurrence: US)
  Receive Date: 20160912
  Receipt Date: 20160912
  Transmission Date: 20161109
  Serious: No
  Sender: FDA-Public Use
  Company Number: US-SA-2016SA146042

PATIENT
  Sex: Male

DRUGS (1)
  1. TOUJEO [Suspect]
     Active Substance: INSULIN GLARGINE
     Indication: DIABETES MELLITUS
     Dosage: DOSE: 60 UNITS IN THE AM AND 40 UNITS AT BEDTIME
     Route: 065
     Dates: start: 20160802

REACTIONS (2)
  - Glycosylated haemoglobin increased [Unknown]
  - Product use issue [Unknown]

NARRATIVE: CASE EVENT DATE: 201608
